FAERS Safety Report 5340853-6 (Version None)
Quarter: 2007Q2

REPORT INFORMATION
  Report Type: 
  Country: None (occurrence: None)
  Receive Date: 20070405
  Receipt Date: 20061211
  Transmission Date: 20071010
  Serious: No
  Sender: FDA-Public Use
  Company Number: US200612001763

PATIENT
  Sex: Male

DRUGS (1)
  1. CYMBALTA [Suspect]
     Indication: DEPRESSION
     Dates: start: 20061001

REACTIONS (5)
  - AGGRESSION [None]
  - DECREASED ACTIVITY [None]
  - NERVE INJURY [None]
  - PANIC ATTACK [None]
  - SUICIDAL IDEATION [None]
